FAERS Safety Report 10173364 (Version 1)
Quarter: 2014Q2

REPORT INFORMATION
  Report Type: Spontaneous
  Country: US (occurrence: None)
  Receive Date: 20140514
  Receipt Date: 20140514
  Transmission Date: 20141212
  Serious: No
  Sender: FDA-Public Use
  Company Number: None

PATIENT
  Age: 31 Year
  Sex: Female
  Weight: 72.58 kg

DRUGS (2)
  1. VYVANSE [Suspect]
     Indication: FATIGUE
     Dosage: VYVANCE, ONCE DAILY, TAKEN BY MOUTH
     Route: 048
  2. VYVANSE [Suspect]
     Indication: ATTENTION DEFICIT/HYPERACTIVITY DISORDER
     Dosage: VYVANCE, ONCE DAILY, TAKEN BY MOUTH
     Route: 048

REACTIONS (13)
  - Arthralgia [None]
  - Musculoskeletal stiffness [None]
  - Pain [None]
  - Peripheral swelling [None]
  - Myalgia [None]
  - Tearfulness [None]
  - Middle insomnia [None]
  - Burning sensation [None]
  - Muscle spasms [None]
  - Tendonitis [None]
  - Pain in extremity [None]
  - Neck pain [None]
  - Musculoskeletal pain [None]
